FAERS Safety Report 13620836 (Version 2)
Quarter: 2018Q3

REPORT INFORMATION
  Report Type: Spontaneous
  Country: DE (occurrence: DE)
  Receive Date: 20170607
  Receipt Date: 20180921
  Transmission Date: 20181010
  Serious: Yes (Hospitalization)
  Sender: FDA-Public Use
  Company Number: DE-DRREDDYS-GER/GER/17/0091156

PATIENT
  Age: 59 Year
  Sex: Female

DRUGS (8)
  1. CITALOPRAM [Suspect]
     Active Substance: CITALOPRAM HYDROBROMIDE
     Indication: PRODUCT USED FOR UNKNOWN INDICATION
     Route: 048
     Dates: end: 20160804
  2. OLANZAPINE. [Suspect]
     Active Substance: OLANZAPINE
     Indication: PRODUCT USED FOR UNKNOWN INDICATION
     Route: 048
     Dates: start: 20160801, end: 20160812
  3. TRAZODONE [Suspect]
     Active Substance: TRAZODONE HYDROCHLORIDE
     Indication: PRODUCT USED FOR UNKNOWN INDICATION
     Route: 048
     Dates: start: 20160805, end: 20160816
  4. METOPROLOL. [Suspect]
     Active Substance: METOPROLOL
     Indication: PRODUCT USED FOR UNKNOWN INDICATION
     Route: 048
  5. DOLO?DOBENDAN [Concomitant]
     Active Substance: BENZOCAINE\CETYLPYRIDINIUM CHLORIDE
     Route: 048
     Dates: start: 20160805
  6. DOLO?DOBENDAN [Concomitant]
     Active Substance: BENZOCAINE\CETYLPYRIDINIUM CHLORIDE
     Route: 048
     Dates: start: 20160809
  7. DOLO?DOBENDAN [Concomitant]
     Active Substance: BENZOCAINE\CETYLPYRIDINIUM CHLORIDE
     Indication: PRODUCT USED FOR UNKNOWN INDICATION
     Dates: start: 20160723
  8. DOLO?DOBENDAN [Concomitant]
     Active Substance: BENZOCAINE\CETYLPYRIDINIUM CHLORIDE
     Route: 048
     Dates: start: 20160810

REACTIONS (4)
  - Swollen tongue [Unknown]
  - Mouth swelling [Unknown]
  - Oral disorder [Unknown]
  - Dry mouth [Recovered/Resolved]

NARRATIVE: CASE EVENT DATE: 20160801
